FAERS Safety Report 23156300 (Version 2)
Quarter: 2023Q4

REPORT INFORMATION
  Report Type: Spontaneous
  Country: US (occurrence: US)
  Receive Date: 20231107
  Receipt Date: 20231204
  Transmission Date: 20240109
  Serious: No
  Sender: FDA-Public Use
  Company Number: US-BEIGENE-BGN-2023-012581

PATIENT

DRUGS (1)
  1. BRUKINSA [Suspect]
     Active Substance: ZANUBRUTINIB
     Indication: Mantle cell lymphoma
     Dosage: 80 MILLIGRAM, BID
     Route: 048
     Dates: start: 20230922

REACTIONS (2)
  - Pain in extremity [Recovered/Resolved]
  - Walking disability [Unknown]
